FAERS Safety Report 7325159-8 (Version None)
Quarter: 2011Q1

REPORT INFORMATION
  Report Type: 
  Country: None (occurrence: None)
  Receive Date: 20110302
  Receipt Date: 20110218
  Transmission Date: 20110831
  Serious: Yes (Other)
  Sender: FDA-Public Use
  Company Number: PHHY2011CA13831

PATIENT
  Sex: Female
  Weight: 62 kg

DRUGS (7)
  1. EXTAVIA [Suspect]
     Indication: RELAPSING-REMITTING MULTIPLE SCLEROSIS
     Dosage: 2 MIU, QOD
     Route: 058
  2. CALCIUM W/MAGNESIUM [Concomitant]
     Dosage: UNK
  3. PRIMA ROSE OIL [Concomitant]
     Dosage: UNK
  4. GABAPENTIN [Concomitant]
     Dosage: 600 MG AT MORNING, 900 MG AT LUNCH, 900 MG AT HS
     Route: 048
  5. CRANBERRY COMPLEX [Concomitant]
  6. VITAMIN D [Concomitant]
     Dosage: 2000 IU, UNK
     Route: 048
  7. COD-LIVER OIL [Concomitant]
     Dosage: UNK

REACTIONS (7)
  - BALANCE DISORDER [None]
  - CHEST DISCOMFORT [None]
  - MUSCLE SPASMS [None]
  - FATIGUE [None]
  - CHILLS [None]
  - FEELING ABNORMAL [None]
  - TREMOR [None]
